FAERS Safety Report 9280001 (Version 1)
Quarter: 2013Q2

REPORT INFORMATION
  Report Type: Report from Study
  Country: US (occurrence: US)
  Receive Date: 20130509
  Receipt Date: 20130509
  Transmission Date: 20140414
  Serious: Yes (Hospitalization, Other)
  Sender: FDA-Public Use
  Company Number: US-PFIZER INC-2008026847

PATIENT
  Age: 49 Year
  Sex: Female
  Weight: 105.22 kg

DRUGS (12)
  1. TOFACITINIB CITRATE [Suspect]
     Indication: RHEUMATOID ARTHRITIS
     Dosage: 5 MG, 2X/DAY
     Route: 048
     Dates: start: 20071102, end: 20080221
  2. FOLIC ACID [Concomitant]
     Route: 048
  3. PREDNISONE [Concomitant]
     Dosage: UNK
     Route: 048
  4. METHOTREXATE [Concomitant]
  5. ALEVE [Concomitant]
     Route: 048
  6. ACETYLSALICYLIC ACID/CAFFEINE/PARACETAMOL/SALICYLAMIDE [Concomitant]
     Route: 048
  7. LOPRESSOR [Concomitant]
     Dosage: UNK
     Route: 048
  8. MULTIVITAMINS [Concomitant]
     Route: 048
  9. CALTRATE [Concomitant]
     Route: 048
  10. BENADRYL [Concomitant]
     Route: 048
  11. VITAMIN D [Concomitant]
     Route: 048
  12. LISINOPRIL [Concomitant]
     Dosage: UNK
     Route: 048

REACTIONS (5)
  - Pancreatitis [Recovered/Resolved]
  - Anaemia [Recovered/Resolved]
  - Dyspnoea [Recovered/Resolved]
  - Pyrexia [Recovered/Resolved]
  - Cholelithiasis [Recovered/Resolved]
